FAERS Safety Report 7622752-X (Version None)
Quarter: 2011Q3

REPORT INFORMATION
  Report Type: 
  Country: None (occurrence: None)
  Receive Date: 20110719
  Receipt Date: 20110719
  Transmission Date: 20111222
  Serious: No
  Sender: FDA-Public Use
  Company Number: None

PATIENT
  Age: 54 Year
  Sex: Female
  Weight: 68.0396 kg

DRUGS (1)
  1. VALACYCLOVIR [Suspect]
     Indication: HERPES ZOSTER
     Dosage: 1GM 3X DAILY/7 DAY
     Dates: start: 20110615

REACTIONS (6)
  - FEELING ABNORMAL [None]
  - VISION BLURRED [None]
  - PRURITUS [None]
  - PHARYNGEAL OEDEMA [None]
  - SWELLING FACE [None]
  - RASH [None]
